FAERS Safety Report 24453699 (Version 2)
Quarter: 2024Q4

REPORT INFORMATION
  Report Type: Report from Study
  Country: US (occurrence: US)
  Receive Date: 20241017
  Receipt Date: 20241018
  Transmission Date: 20250115
  Serious: No
  Sender: ROCHE
  Company Number: US-ROCHE-3394821

PATIENT
  Age: 68 Year
  Sex: Male
  Weight: 73.94 kg

DRUGS (16)
  1. RITUXAN [Suspect]
     Active Substance: RITUXIMAB
     Indication: Plasma cell myeloma
     Route: 065
     Dates: start: 20220106
  2. RUXIENCE [Suspect]
     Active Substance: RITUXIMAB-PVVR
     Indication: Plasma cell myeloma
     Dosage: 700 MG IV ON DAY 1, 8, 15, 22 OF CYCLE 1, 700 MG IV ON DAY 1 OF CYCLE 2-5
     Route: 042
     Dates: start: 20210428
  3. ALLOPURINOL [Concomitant]
     Active Substance: ALLOPURINOL
  4. ACETAMINOPHEN\HYDROCODONE [Concomitant]
     Active Substance: ACETAMINOPHEN\HYDROCODONE
  5. REVLIMID [Concomitant]
     Active Substance: LENALIDOMIDE
  6. DEXAMETHASONE [Concomitant]
     Active Substance: DEXAMETHASONE
  7. ONDANSETRON [Concomitant]
     Active Substance: ONDANSETRON
  8. PROCHLORPERAZINE [Concomitant]
     Active Substance: PROCHLORPERAZINE
  9. PREDNISONE [Concomitant]
     Active Substance: PREDNISONE
  10. SUCRALFATE [Concomitant]
     Active Substance: SUCRALFATE
  11. ACYCLOVIR [Concomitant]
     Active Substance: ACYCLOVIR
  12. LENALIDOMIDE [Concomitant]
     Active Substance: LENALIDOMIDE
  13. TRIAMCINOLONE [Concomitant]
     Active Substance: TRIAMCINOLONE
  14. CEPHALEXIN [Concomitant]
     Active Substance: CEPHALEXIN
  15. DIPHENHYDRAMINE [Concomitant]
     Active Substance: DIPHENHYDRAMINE
  16. ACETAMINOPHEN [Concomitant]
     Active Substance: ACETAMINOPHEN

REACTIONS (4)
  - Off label use [Unknown]
  - Night sweats [Unknown]
  - Rash [Unknown]
  - Rash pruritic [Unknown]
